FAERS Safety Report 18302038 (Version 4)
Quarter: 2021Q1

REPORT INFORMATION
  Report Type: Report from Study
  Country: US (occurrence: US)
  Receive Date: 20200923
  Receipt Date: 20210201
  Transmission Date: 20210419
  Serious: Yes (Other)
  Sender: FDA-Public Use
  Company Number: NVSC2020US259590

PATIENT
  Sex: Female

DRUGS (2)
  1. MEKINIST [Suspect]
     Active Substance: TRAMETINIB DIMETHYL SULFOXIDE
     Indication: MALIGNANT MELANOMA
     Dosage: 2 MG, QD
     Route: 048
     Dates: start: 20200608
  2. TAFINLAR [Suspect]
     Active Substance: DABRAFENIB MESYLATE
     Indication: MALIGNANT MELANOMA
     Dosage: 150 MG, Q12H
     Route: 048
     Dates: start: 20200608

REACTIONS (7)
  - Pain in extremity [Unknown]
  - Arthralgia [Unknown]
  - Chills [Unknown]
  - Vomiting [Unknown]
  - Nausea [Unknown]
  - Pyrexia [Unknown]
  - Diarrhoea [Unknown]
